FAERS Safety Report 6556440-8 (Version None)
Quarter: 2010Q1

REPORT INFORMATION
  Report Type: 
  Country: None (occurrence: None)
  Receive Date: 20100128
  Receipt Date: 20100125
  Transmission Date: 20100710
  Serious: Yes (Life-Threatening)
  Sender: FDA-Public Use
  Company Number: B0628939A

PATIENT
  Sex: Male

DRUGS (7)
  1. AUGMENTIN '125' [Suspect]
     Indication: DRUG USE FOR UNKNOWN INDICATION
     Dosage: 1G UNKNOWN
     Route: 042
     Dates: start: 20090928, end: 20090928
  2. ULTIVA [Concomitant]
     Route: 042
     Dates: start: 20090928, end: 20090928
  3. HYPNOVEL [Concomitant]
     Route: 042
     Dates: start: 20090928, end: 20090928
  4. DIPRIVAN [Concomitant]
     Route: 042
     Dates: start: 20090928, end: 20090928
  5. KETAMINE HCL [Concomitant]
     Route: 042
     Dates: start: 20090928, end: 20090928
  6. XYLOCAINE [Concomitant]
     Route: 065
     Dates: start: 20090928, end: 20090928
  7. NAPHAZOLINE HCL [Concomitant]
     Route: 065
     Dates: start: 20090928, end: 20090928

REACTIONS (3)
  - ANAPHYLACTIC SHOCK [None]
  - DRUG HYPERSENSITIVITY [None]
  - SKIN TEST POSITIVE [None]
